FAERS Safety Report 23920208 (Version 1)
Quarter: 2024Q2

REPORT INFORMATION
  Report Type: Spontaneous
  Country: US (occurrence: None)
  Receive Date: 20240530
  Receipt Date: 20240530
  Transmission Date: 20240715
  Serious: No
  Sender: FDA-Public Use
  Company Number: None

PATIENT

DRUGS (2)
  1. ENOXAPARIN SODIUM [Suspect]
     Active Substance: ENOXAPARIN SODIUM
     Dosage: OTHER QUANTITY : TEN 0.8ML SINGLE;?
     Route: 058
  2. ENOXAPARIN SODIUM [Suspect]
     Active Substance: ENOXAPARIN SODIUM
     Dosage: OTHER QUANTITY : 10 1 ML SYRINGES; ?STRENGTH: 150MG/1 ML?
     Route: 058

REACTIONS (4)
  - Wrong product stored [None]
  - Product label confusion [None]
  - Product packaging confusion [None]
  - Wrong product administered [None]
